FAERS Safety Report 4809278-3 (Version None)
Quarter: 2005Q4

REPORT INFORMATION
  Report Type: 
  Country: None (occurrence: None)
  Receive Date: 20051021
  Receipt Date: 20021015
  Transmission Date: 20060501
  Serious: Yes (Hospitalization)
  Sender: FDA-Public Use
  Company Number: EWC021032739

PATIENT
  Age: 74 Year
  Sex: Female
  Weight: 65 kg

DRUGS (10)
  1. ZYPREXA [Suspect]
     Indication: SCHIZOPHRENIA, PARANOID TYPE
     Dosage: 5 MG/DAY
     Dates: start: 20020911, end: 20021010
  2. ISOSORBIDE MONONITRATE [Concomitant]
  3. MOLSIDOMINE [Concomitant]
  4. DONEPEZIL HCL [Concomitant]
  5. KALIUM (POTASSIUM CHLORIDE) [Concomitant]
  6. TICLOPIDINE HYDROCHLORIDE [Concomitant]
  7. FAMOTIDINE [Concomitant]
  8. KETOPROFEN [Concomitant]
  9. PEFLOXACIN [Concomitant]
  10. NEOMYCIN [Concomitant]

REACTIONS (1)
  - WHITE BLOOD CELL COUNT DECREASED [None]
